FAERS Safety Report 14474307 (Version 2)
Quarter: 2018Q1

REPORT INFORMATION
  Report Type: Spontaneous
  Country: CH (occurrence: CH)
  Receive Date: 20180201
  Receipt Date: 20180211
  Transmission Date: 20180509
  Serious: Yes (Hospitalization, Other)
  Sender: FDA-Public Use
  Company Number: CH-ALLERGAN-1804728US

PATIENT
  Age: 83 Year
  Sex: Female
  Weight: 62.2 kg

DRUGS (11)
  1. FLUDEX (INDAPAMIDE) [Suspect]
     Active Substance: INDAPAMIDE
     Indication: HYPERTENSION
     Dosage: 1.5 MG, QD
     Route: 065
  2. ESCITALOPRAM OXALATE - BP [Suspect]
     Active Substance: ESCITALOPRAM OXALATE
     Indication: PANIC ATTACK
     Dosage: 15 MG, UNKNOWN
     Route: 065
     Dates: start: 20171021
  3. ESCITALOPRAM OXALATE - BP [Suspect]
     Active Substance: ESCITALOPRAM OXALATE
     Indication: RESTLESSNESS
     Dosage: 10 MG, UNKNOWN
     Route: 065
  4. ONDANSETRON [Concomitant]
     Active Substance: ONDANSETRON
     Indication: PRODUCT USED FOR UNKNOWN INDICATION
  5. VITAMIN B12 [Concomitant]
     Active Substance: CYANOCOBALAMIN
     Indication: PRODUCT USED FOR UNKNOWN INDICATION
  6. ROSUVASTATIN. [Concomitant]
     Active Substance: ROSUVASTATIN
     Indication: PRODUCT USED FOR UNKNOWN INDICATION
  7. ESCITALOPRAM OXALATE - BP [Suspect]
     Active Substance: ESCITALOPRAM OXALATE
     Indication: ANXIETY DISORDER
     Dosage: 10 MG, UNKNOWN
     Route: 065
     Dates: start: 20171013
  8. ASPIRIN. [Concomitant]
     Active Substance: ASPIRIN
     Indication: PRODUCT USED FOR UNKNOWN INDICATION
  9. ZESTRIL [Concomitant]
     Active Substance: LISINOPRIL
     Indication: PRODUCT USED FOR UNKNOWN INDICATION
  10. ESCITALOPRAM OXALATE - BP [Suspect]
     Active Substance: ESCITALOPRAM OXALATE
     Dosage: 2.5 MG, UNKNOWN
     Route: 065
     Dates: start: 20171021
  11. REDORMIN [Concomitant]
     Indication: PRODUCT USED FOR UNKNOWN INDICATION
     Dosage: UNK
     Dates: start: 20171013

REACTIONS (21)
  - Tension [Unknown]
  - Hypokalaemia [Unknown]
  - Asthenia [Unknown]
  - Hyponatraemia [Unknown]
  - Grief reaction [Unknown]
  - Constipation [Unknown]
  - Panic attack [Unknown]
  - Gait disturbance [Unknown]
  - Malnutrition [Unknown]
  - Anxiety [Unknown]
  - Urinary tract infection [Unknown]
  - Dizziness [Unknown]
  - Malaise [Unknown]
  - Depressed mood [Unknown]
  - Restlessness [Unknown]
  - Agitation [Unknown]
  - Vomiting [Unknown]
  - Thinking abnormal [Unknown]
  - Chest discomfort [Unknown]
  - Chronic kidney disease [Unknown]
  - Nausea [Unknown]

NARRATIVE: CASE EVENT DATE: 20171016
